FAERS Safety Report 17100349 (Version 1)
Quarter: 2019Q4

REPORT INFORMATION
  Report Type: Spontaneous
  Country: US (occurrence: US)
  Receive Date: 20191202
  Receipt Date: 20191202
  Transmission Date: 20200122
  Serious: No
  Sender: FDA-Public Use
  Company Number: US-TEVA-2019-US-1144943

PATIENT
  Age: 60 Year
  Sex: Female

DRUGS (2)
  1. TEVA BUPROPION HYDROCHLORIDE EXTENDED RELEASE TABLETS [Suspect]
     Active Substance: BUPROPION HYDROCHLORIDE
     Indication: ANXIETY
  2. TEVA BUPROPION HYDROCHLORIDE EXTENDED RELEASE TABLETS [Suspect]
     Active Substance: BUPROPION HYDROCHLORIDE
     Indication: DEPRESSION
     Dosage: DOSE STRENGTH:  150
     Dates: start: 20191111

REACTIONS (3)
  - Product use in unapproved indication [Unknown]
  - Product substitution issue [Unknown]
  - Rash [Unknown]

NARRATIVE: CASE EVENT DATE: 201911
